FAERS Safety Report 14923434 (Version 1)
Quarter: 2018Q2

REPORT INFORMATION
  Report Type: Spontaneous
  Country: US (occurrence: US)
  Receive Date: 20180522
  Receipt Date: 20180522
  Transmission Date: 20180711
  Serious: Yes (Death, Hospitalization, Other)
  Sender: FDA-Public Use
  Company Number: US-DENTSPLY-2018SCDP000127

PATIENT

DRUGS (1)
  1. LIDOCAINE. [Suspect]
     Active Substance: LIDOCAINE
     Indication: TEETHING
     Dosage: 2 % VISCOUS LIDOCAINE
     Route: 061

REACTIONS (6)
  - Incorrect route of drug administration [Unknown]
  - Generalised tonic-clonic seizure [Fatal]
  - Cardiac arrest [Fatal]
  - Product appearance confusion [Unknown]
  - Toxicity to various agents [Fatal]
  - Wrong drug administered [Unknown]
